FAERS Safety Report 6005653-2 (Version None)
Quarter: 2008Q4

REPORT INFORMATION
  Report Type: 
  Country: None (occurrence: None)
  Receive Date: 20081217
  Receipt Date: 20081209
  Transmission Date: 20090506
  Serious: Yes (Hospitalization, Other)
  Sender: FDA-Public Use
  Company Number: FR-JNJFOC-20081202123

PATIENT
  Age: 69 Year
  Sex: Male

DRUGS (16)
  1. OFLOXACIN [Suspect]
     Indication: SKIN ULCER
     Route: 048
  2. METOJECT [Suspect]
     Indication: ANKYLOSING SPONDYLITIS
     Route: 050
  3. FUCIDINE CAP [Suspect]
     Indication: DRUG USE FOR UNKNOWN INDICATION
     Route: 048
  4. VANCOMYCIN HCL [Suspect]
     Indication: DRUG USE FOR UNKNOWN INDICATION
     Route: 042
  5. NEXIUM [Concomitant]
     Dosage: 20MG GASTRORESISTENT TABLETS
     Route: 048
  6. PYOSTACINE [Concomitant]
     Route: 048
  7. AMLOD [Concomitant]
     Route: 048
  8. APROVEL [Concomitant]
     Route: 048
  9. ATENOLOL [Concomitant]
     Route: 048
  10. CELEBREX [Concomitant]
     Route: 048
  11. TRAMADOL HCL [Concomitant]
     Route: 048
  12. DAFALGAN [Concomitant]
     Dosage: 6 UNITS
     Route: 048
  13. ESIDRIX [Concomitant]
     Route: 048
  14. LASIX [Concomitant]
     Route: 048
  15. STAGID [Concomitant]
     Route: 048
  16. PREVISCAN [Concomitant]
     Dosage: CYCLICALLY
     Route: 048

REACTIONS (5)
  - ANAEMIA [None]
  - LEUKOPENIA [None]
  - MOUTH ULCERATION [None]
  - NEUTROPENIA [None]
  - THROMBOCYTOPENIA [None]
